FAERS Safety Report 10251469 (Version 1)
Quarter: 2014Q2

REPORT INFORMATION
  Report Type: Report from Study
  Country: JP (occurrence: JP)
  Receive Date: 20140623
  Receipt Date: 20140623
  Transmission Date: 20141212
  Serious: Yes (Death)
  Sender: FDA-Public Use
  Company Number: JP-ROCHE-1421096

PATIENT
  Age: 50 Year
  Sex: Female

DRUGS (2)
  1. BEVACIZUMAB [Suspect]
     Indication: BREAST CANCER
     Route: 041
  2. PACLITAXEL [Suspect]
     Indication: BREAST CANCER
     Dosage: LAST DOSE ON 19/MAY/2014
     Route: 041

REACTIONS (1)
  - Malignant pleural effusion [Fatal]
